FAERS Safety Report 10172458 (Version 3)
Quarter: 2014Q4

REPORT INFORMATION
  Report Type: Spontaneous
  Country: US (occurrence: US)
  Receive Date: 20140515
  Receipt Date: 20141027
  Transmission Date: 20150528
  Serious: Yes (Hospitalization)
  Sender: FDA-Public Use
  Company Number: US-BAYER-2014-070991

PATIENT
  Age: 23 Year
  Sex: Female
  Weight: 76.19 kg

DRUGS (1)
  1. MIRENA [Suspect]
     Active Substance: LEVONORGESTREL
     Indication: CONTRACEPTION
     Dosage: 20 MCG/24HR, CONT
     Route: 015
     Dates: start: 20111021, end: 20120617

REACTIONS (12)
  - Injury [None]
  - Depression [None]
  - Device issue [None]
  - Drug ineffective [None]
  - Embedded device [None]
  - Pain [None]
  - Stress [None]
  - Pregnancy with contraceptive device [None]
  - Anxiety [None]
  - Medical device pain [None]
  - Fear [None]
  - Medical device discomfort [None]

NARRATIVE: CASE EVENT DATE: 201112
